FAERS Safety Report 20465395 (Version 2)
Quarter: 2022Q1

REPORT INFORMATION
  Report Type: Spontaneous
  Country: None (occurrence: US)
  Receive Date: 20220212
  Receipt Date: 20220305
  Transmission Date: 20220424
  Serious: No
  Sender: FDA-Public Use
  Company Number: US-Guardian Drug Company-2125839

PATIENT
  Age: 69 Year
  Sex: Female
  Weight: 59.091 kg

DRUGS (1)
  1. GUAIFENESIN EXTENDED-RELEASE [Suspect]
     Active Substance: GUAIFENESIN
     Indication: Respiratory tract congestion
     Route: 065
     Dates: start: 20220112, end: 20220114

REACTIONS (1)
  - Urticaria [Not Recovered/Not Resolved]

NARRATIVE: CASE EVENT DATE: 20220115
